FAERS Safety Report 5385707-4 (Version None)
Quarter: 2007Q3

REPORT INFORMATION
  Report Type: 
  Country: None (occurrence: None)
  Receive Date: 20070710
  Receipt Date: 20070125
  Transmission Date: 20080115
  Serious: Yes (Hospitalization)
  Sender: FDA-Public Use
  Company Number: US-2007-002799

PATIENT
  Age: 32 Year
  Sex: Female
  Weight: 67.1 kg

DRUGS (1)
  1. YASMIN [Suspect]
     Indication: ORAL CONTRACEPTION
     Dosage: 1 TAB(S), 1X/DAY, ORAL
     Route: 048
     Dates: start: 20060101, end: 20070114

REACTIONS (4)
  - ANXIETY [None]
  - CHEST DISCOMFORT [None]
  - HYPERTENSION [None]
  - MAGNESIUM DEFICIENCY [None]
